FAERS Safety Report 8319710-9 (Version None)
Quarter: 2012Q2

REPORT INFORMATION
  Report Type: 
  Country: None (occurrence: None)
  Receive Date: 20120427
  Receipt Date: 20120419
  Transmission Date: 20120825
  Serious: Yes (Other)
  Sender: FDA-Public Use
  Company Number: US-ELI_LILLY_AND_COMPANY-2005PV000409

PATIENT
  Sex: Female
  Weight: 106.58 kg

DRUGS (13)
  1. MULTI-VITAMINS [Concomitant]
     Dosage: UNK, UNK
  2. CALCIUM [Concomitant]
     Indication: OSTEOPOROSIS
     Dosage: UNK, UNK
  3. ENABLEX                            /01760402/ [Concomitant]
     Dosage: UNK, UNK
  4. EXENATIDE [Suspect]
     Indication: TYPE 2 DIABETES MELLITUS
     Dosage: 5 UG, 2/D
     Route: 058
     Dates: start: 20050715
  5. CELEBREX [Concomitant]
     Indication: OSTEOARTHRITIS
     Dosage: 200 MG, 2/D
     Route: 048
  6. LISINOPRIL [Concomitant]
     Indication: HYPERTENSION
     Dosage: UNK
  7. EXENATIDE [Suspect]
     Dosage: 10 UG, BID
     Route: 058
  8. NASONEX [Concomitant]
     Indication: HYPERSENSITIVITY
     Dosage: UNK
     Route: 055
  9. ACTOS [Concomitant]
     Indication: TYPE 2 DIABETES MELLITUS
     Dosage: 15 MG, DAILY (1/D)
     Route: 048
  10. POLY-IRON [Concomitant]
     Indication: ANAEMIA
     Dosage: 150 MG, DAILY (1/D)
     Route: 048
  11. GLUCOSAMINE W/CHONDROITIN SULF./MANGAN./VIT C [Concomitant]
     Indication: OSTEOARTHRITIS
     Dosage: UNK, UNK
  12. ALLERGY [Concomitant]
     Indication: HYPERSENSITIVITY
     Dosage: UNK, UNK
  13. ASPIRIN [Concomitant]
     Indication: EMBOLISM
     Dosage: 81 MG, DAILY (1/D)
     Route: 048

REACTIONS (4)
  - CHRONIC LYMPHOCYTIC LEUKAEMIA STAGE 2 [None]
  - TREMOR [None]
  - LYMPHADENOPATHY [None]
  - INJECTION SITE HAEMORRHAGE [None]
